FAERS Safety Report 6062573-5 (Version None)
Quarter: 2009Q1

REPORT INFORMATION
  Report Type: 
  Country: None (occurrence: None)
  Receive Date: 20090203
  Receipt Date: 20090126
  Transmission Date: 20090719
  Serious: Yes (Other)
  Sender: FDA-Public Use
  Company Number: US-ALLERGAN-0814324US

PATIENT
  Sex: Female

DRUGS (7)
  1. PRED FORTE [Suspect]
     Indication: POSTOPERATIVE CARE
     Dosage: 4-6 TIMES/DAY
     Route: 047
     Dates: start: 20040101
  2. PRED FORTE [Suspect]
     Indication: TRANSPLANT REJECTION
     Dosage: 1 GTT, BID
     Route: 047
     Dates: start: 20080520
  3. MURO-128 [Concomitant]
     Indication: CORNEAL OEDEMA
     Route: 047
     Dates: start: 20080501
  4. OPTIVE [Concomitant]
     Indication: DRY EYE
     Dosage: UNK, QHS
     Route: 047
  5. SYSTANE [Concomitant]
     Indication: DRY EYE
     Dosage: UNK, QHS
     Route: 047
  6. ACTONEL [Concomitant]
     Indication: OSTEOPOROSIS
  7. CALCIUM W/MAGNESIUM/VITAMIN D [Concomitant]
     Indication: DENTAL CARE

REACTIONS (4)
  - BLOOD AMYLASE INCREASED [None]
  - DYSGEUSIA [None]
  - EYE IRRITATION [None]
  - LIPASE INCREASED [None]
